FAERS Safety Report 5721938-9 (Version None)
Quarter: 2008Q2

REPORT INFORMATION
  Report Type: 
  Country: None (occurrence: None)
  Receive Date: 20080429
  Receipt Date: 20080417
  Transmission Date: 20081010
  Serious: Yes (Hospitalization, Other)
  Sender: FDA-Public Use
  Company Number: CH-PFIZER INC-2008025000

PATIENT
  Age: 68 Year
  Sex: Female
  Weight: 32 kg

DRUGS (5)
  1. VFEND [Suspect]
     Indication: BRONCHOPULMONARY ASPERGILLOSIS
     Route: 048
  2. LASIX [Concomitant]
  3. PERENTEROL [Concomitant]
  4. MAGNESIUM [Concomitant]
  5. DAFALGAN [Concomitant]

REACTIONS (2)
  - ARTHRITIS [None]
  - GASTROINTESTINAL NECROSIS [None]
